FAERS Safety Report 20688370 (Version 4)
Quarter: 2022Q2

REPORT INFORMATION
  Report Type: Report from Study
  Country: US (occurrence: US)
  Receive Date: 20220408
  Receipt Date: 20220607
  Transmission Date: 20220720
  Serious: Yes (Other)
  Sender: FDA-Public Use
  Company Number: US-BEH-2022143699

PATIENT
  Age: 66 Year
  Sex: Female

DRUGS (2)
  1. HIZENTRA [Suspect]
     Active Substance: HUMAN IMMUNOGLOBULIN G
     Indication: Immunodeficiency
     Route: 065
  2. HIZENTRA [Suspect]
     Active Substance: HUMAN IMMUNOGLOBULIN G
     Dosage: 8 GRAM, QW
     Route: 065

REACTIONS (20)
  - Administration site pain [Not Recovered/Not Resolved]
  - Device malfunction [Not Recovered/Not Resolved]
  - Administration site erythema [Not Recovered/Not Resolved]
  - Device malfunction [Not Recovered/Not Resolved]
  - Skin cancer [Unknown]
  - No adverse event [Not Recovered/Not Resolved]
  - Product distribution issue [Not Recovered/Not Resolved]
  - No adverse event [Unknown]
  - Underdose [Unknown]
  - Injection site extravasation [Unknown]
  - Administration site extravasation [Unknown]
  - COVID-19 [Recovering/Resolving]
  - Infusion site extravasation [Unknown]
  - No adverse event [Unknown]
  - Product use complaint [Unknown]
  - Pain [Unknown]
  - Infusion site pain [Unknown]
  - Incorrect dose administered [Unknown]
  - Incorrect dose administered [Unknown]
  - Infusion site scar [Unknown]

NARRATIVE: CASE EVENT DATE: 20220101
